FAERS Safety Report 9893662 (Version 1)
Quarter: 2014Q1

REPORT INFORMATION
  Report Type: Spontaneous
  Country: CA (occurrence: CA)
  Receive Date: 20140213
  Receipt Date: 20140213
  Transmission Date: 20141002
  Serious: Yes (Other)
  Sender: FDA-Public Use
  Company Number: CA-TEVA-462424USA

PATIENT
  Age: 41 Year
  Sex: Male

DRUGS (2)
  1. TREANDA [Suspect]
     Indication: IMMUNOGLOBULIN G4 RELATED SCLEROSING DISEASE
     Dosage: CYCLE 1
     Route: 042
     Dates: start: 201310
  2. RITUXIMAB [Suspect]
     Indication: IMMUNOGLOBULIN G4 RELATED SCLEROSING DISEASE
     Dosage: CYCLE 1
     Route: 042
     Dates: start: 201310

REACTIONS (2)
  - Off label use [Unknown]
  - Pancytopenia [Not Recovered/Not Resolved]
